FAERS Safety Report 6526896-5 (Version None)
Quarter: 2009Q4

REPORT INFORMATION
  Report Type: 
  Country: None (occurrence: None)
  Receive Date: 20091229
  Receipt Date: 20090215
  Transmission Date: 20100525
  Serious: Yes (Hospitalization, Other)
  Sender: FDA-Public Use
  Company Number: PV1-2009-00944

PATIENT
  Age: 8 Year
  Sex: Male
  Weight: 23 kg

DRUGS (2)
  1. METHYLPHENIDATE HCL [Suspect]
     Indication: ATTENTION DEFICIT/HYPERACTIVITY DISORDER
     Dosage: 10 MG, 2X/DAY: BID, ORAL
     Route: 048
     Dates: start: 20090109, end: 20090130
  2. METHYLPHENIDATE HCL [Suspect]
     Indication: ATTENTION DEFICIT/HYPERACTIVITY DISORDER
     Dosage: 10 MG, 2X/DAY: BID, ORAL
     Route: 048
     Dates: start: 20090201, end: 20090202

REACTIONS (4)
  - CONDITION AGGRAVATED [None]
  - LETHARGY [None]
  - SOMNOLENCE [None]
  - TIC [None]
